FAERS Safety Report 4330610-1 (Version None)
Quarter: 2004Q2

REPORT INFORMATION
  Report Type: 
  Country: None (occurrence: None)
  Receive Date: 20040402
  Receipt Date: 20040322
  Transmission Date: 20050107
  Serious: Yes (Hospitalization)
  Sender: FDA-Public Use
  Company Number: FR-BRISTOL-MYERS SQUIBB COMPANY-12548392

PATIENT
  Age: 69 Year
  Sex: Male

DRUGS (6)
  1. APROVEL [Suspect]
     Indication: HYPERTENSION
     Dosage: TIME TO ONSET 4 YRS 25 WEEKS 2 DAYS
     Route: 048
     Dates: start: 19990615
  2. PLAVIX [Suspect]
     Indication: ARTERITIS
     Dosage: BEGAN 75 MG QD (ON A FEW YRS),DOSE INCREASED 01-DEC-2003 TO 150 MG QD-D/CED 22-DEC-03
     Route: 048
     Dates: end: 20031222
  3. TAHOR [Suspect]
     Indication: HYPERLIPIDAEMIA
     Dosage: ON FOR 8 YEARS, 30 WKS 4 DAYS,TIME TO ONSET:8 YRS 25 WKS 2 DAYS
     Route: 048
     Dates: start: 19950615, end: 20040114
  4. TRANDATE [Suspect]
     Indication: HYPERTENSION
     Dosage: TIME TO ONSET: 4 YRS 25 WEEKS 2 DAYS
     Route: 048
     Dates: start: 19990615
  5. MOPRAL [Suspect]
     Indication: ABDOMINAL PAIN
     Route: 048
     Dates: start: 20010615, end: 20040114
  6. BUFLOMEDIL [Suspect]
     Indication: ARTERITIS
     Route: 048

REACTIONS (4)
  - ECCHYMOSIS [None]
  - INTENTIONAL OVERDOSE [None]
  - PETECHIAE [None]
  - THROMBOCYTOPENIA [None]
